FAERS Safety Report 4813077-6 (Version None)
Quarter: 2005Q4

REPORT INFORMATION
  Report Type: 
  Country: None (occurrence: None)
  Receive Date: 20051028
  Receipt Date: 20051020
  Transmission Date: 20060501
  Serious: Yes (Other)
  Sender: FDA-Public Use
  Company Number: FR-JNJFOC-20051004721

PATIENT
  Age: 40 Year
  Sex: Female

DRUGS (2)
  1. REMICADE [Suspect]
     Dosage: FOURTH INFUSION.
     Route: 042
  2. METHOTREXATE [Suspect]
     Indication: PSORIASIS
     Route: 048

REACTIONS (2)
  - DYSPNOEA [None]
  - LUNG INFILTRATION [None]
